FAERS Safety Report 21397681 (Version 2)
Quarter: 2022Q4

REPORT INFORMATION
  Report Type: Spontaneous
  Country: SI (occurrence: SI)
  Receive Date: 20220930
  Receipt Date: 20221014
  Transmission Date: 20230113
  Serious: Yes (Other)
  Sender: FDA-Public Use
  Company Number: SI-BIOGEN-2022BI01158413

PATIENT
  Sex: Female

DRUGS (3)
  1. TECFIDERA [Suspect]
     Active Substance: DIMETHYL FUMARATE
     Indication: Relapsing-remitting multiple sclerosis
     Route: 050
     Dates: start: 201609, end: 201712
  2. TECFIDERA [Suspect]
     Active Substance: DIMETHYL FUMARATE
     Route: 050
     Dates: start: 202105, end: 202201
  3. TECFIDERA [Suspect]
     Active Substance: DIMETHYL FUMARATE
     Route: 050
     Dates: start: 202203, end: 202206

REACTIONS (2)
  - Ectopic pregnancy [Unknown]
  - Maternal exposure during pregnancy [Unknown]
